FAERS Safety Report 14442184 (Version 11)
Quarter: 2019Q4

REPORT INFORMATION
  Report Type: Spontaneous
  Country: CA (occurrence: CA)
  Receive Date: 20180125
  Receipt Date: 20191111
  Transmission Date: 20200122
  Serious: Yes (Hospitalization, Other)
  Sender: FDA-Public Use
  Company Number: CA-CELLTRION INC.-2018CA017566

PATIENT

DRUGS (10)
  1. METHOTREXATE SODIUM. [Suspect]
     Active Substance: METHOTREXATE SODIUM
     Indication: PRODUCT USED FOR UNKNOWN INDICATION
     Dosage: 10 MG, WEEKLY
     Route: 065
     Dates: start: 201710
  2. INFLECTRA [Suspect]
     Active Substance: INFLIXIMAB-DYYB
     Dosage: 600 MG, (AT 1, 4 WEEKS, THEN 300 MG EVERY 8 WEEKS)
     Route: 042
     Dates: start: 20180117
  3. INFLECTRA [Suspect]
     Active Substance: INFLIXIMAB-DYYB
     Dosage: 600 MG, (EVERY 6 WEEKS)
     Route: 042
     Dates: start: 20190130
  4. PREDNISONE. [Suspect]
     Active Substance: PREDNISONE
     Indication: PRODUCT USED FOR UNKNOWN INDICATION
     Dosage: 40 MG (IN DECREASING DOSE), UNK
     Route: 065
     Dates: start: 201710
  5. INFLECTRA [Suspect]
     Active Substance: INFLIXIMAB-DYYB
     Dosage: 600 MG,  (AT 1, 4 WEEKS, THEN 300 MG EVERY 8 WEEKS)
     Route: 042
     Dates: start: 20180228, end: 20180228
  6. INFLECTRA [Suspect]
     Active Substance: INFLIXIMAB-DYYB
     Dosage: 600 MG, (EVERY 6 WEEKS)
     Route: 042
     Dates: start: 20180411
  7. SOLU-MEDROL [Suspect]
     Active Substance: METHYLPREDNISOLONE SODIUM SUCCINATE
     Indication: PRODUCT USED FOR UNKNOWN INDICATION
     Dosage: UNK
     Route: 042
     Dates: start: 201710
  8. INFLECTRA [Suspect]
     Active Substance: INFLIXIMAB-DYYB
     Dosage: 600 MG, (EVERY 6 WEEKS)
     Route: 042
     Dates: start: 20190827
  9. INFLECTRA [Suspect]
     Active Substance: INFLIXIMAB-DYYB
     Indication: COLITIS ULCERATIVE
     Dosage: 600 MG, (AT 1, 4 WEEKS, THEN 300 MG EVERY 8 WEEKS)
     Route: 042
     Dates: start: 20171022
  10. INFLECTRA [Suspect]
     Active Substance: INFLIXIMAB-DYYB
     Dosage: 600 MG,  (EVERY 6 WEEKS)
     Route: 042
     Dates: start: 20181219

REACTIONS (5)
  - Pulmonary embolism [Recovering/Resolving]
  - Condition aggravated [Unknown]
  - Off label use [Unknown]
  - Product use issue [Unknown]
  - Off label use [Unknown]

NARRATIVE: CASE EVENT DATE: 20171022
